FAERS Safety Report 12850249 (Version 1)
Quarter: 2016Q4

REPORT INFORMATION
  Report Type: Spontaneous
  Country: IE (occurrence: IE)
  Receive Date: 20161014
  Receipt Date: 20161014
  Transmission Date: 20170207
  Serious: Yes (Other)
  Sender: FDA-Public Use
  Company Number: IE-PFIZER INC-2013238412

PATIENT
  Age: 41 Year
  Sex: Male

DRUGS (5)
  1. MST /00021210/ [Concomitant]
  2. ORAMORPH [Concomitant]
     Active Substance: MORPHINE SULFATE
  3. SUTENT [Suspect]
     Active Substance: SUNITINIB MALATE
     Indication: METASTATIC RENAL CELL CARCINOMA
     Dosage: 50 MG, ON 4/2 SCHEDULE
     Dates: start: 20130424, end: 20131202
  4. LYRICA [Concomitant]
     Active Substance: PREGABALIN
  5. DOMPERIDONE [Concomitant]
     Active Substance: DOMPERIDONE

REACTIONS (3)
  - Stomatitis [Unknown]
  - Palmar-plantar erythrodysaesthesia syndrome [Unknown]
  - Pulmonary oedema [Unknown]
